FAERS Safety Report 4350135-7 (Version None)
Quarter: 2004Q2

REPORT INFORMATION
  Report Type: 
  Country: None (occurrence: None)
  Receive Date: 20040426
  Receipt Date: 22000412
  Transmission Date: 20050107
  Serious: Yes (Hospitalization)
  Sender: FDA-Public Use
  Company Number: 2004040001

PATIENT
  Age: 67 Year
  Sex: Male

DRUGS (3)
  1. DORAL [Suspect]
     Indication: INSOMNIA
     Dosage: 30 MG DAILY, PO
     Route: 048
     Dates: end: 20040307
  2. RISPERIDONE [Concomitant]
  3. TIAPRIDE HCL (TIAPRIDE HYDROCHLORIDE) [Concomitant]

REACTIONS (3)
  - DEPRESSED LEVEL OF CONSCIOUSNESS [None]
  - RESPIRATORY DEPRESSION [None]
  - SOMNOLENCE [None]
